FAERS Safety Report 12981033 (Version 1)
Quarter: 2016Q4

REPORT INFORMATION
  Report Type: Spontaneous
  Country: FR (occurrence: FR)
  Receive Date: 20161128
  Receipt Date: 20161128
  Transmission Date: 20170207
  Serious: Yes (Other)
  Sender: FDA-Public Use
  Company Number: FR-BAXTER-2016BAX059590

PATIENT
  Age: 66 Year
  Sex: Male

DRUGS (17)
  1. RITUXIMAB [Suspect]
     Active Substance: RITUXIMAB
     Indication: NODAL MARGINAL ZONE B-CELL LYMPHOMA
     Route: 042
  2. PREDNISONE. [Suspect]
     Active Substance: PREDNISONE
     Route: 065
  3. ENDOXAN 1000 MG, POUDRE POUR SOLUTION INJECTABLE [Suspect]
     Active Substance: CYCLOPHOSPHAMIDE
     Route: 065
  4. PREDNISONE. [Suspect]
     Active Substance: PREDNISONE
     Indication: NODAL MARGINAL ZONE B-CELL LYMPHOMA
     Route: 065
  5. BENDAMUSTINE [Concomitant]
     Active Substance: BENDAMUSTINE
     Indication: NODAL MARGINAL ZONE B-CELL LYMPHOMA
     Route: 065
  6. ENDOXAN 1000 MG, POUDRE POUR SOLUTION INJECTABLE [Suspect]
     Active Substance: CYCLOPHOSPHAMIDE
     Route: 065
  7. DOXORUBICIN [Suspect]
     Active Substance: DOXORUBICIN
     Route: 065
  8. RITUXIMAB [Suspect]
     Active Substance: RITUXIMAB
     Route: 042
  9. VINCRISTINE [Suspect]
     Active Substance: VINCRISTINE
     Route: 065
  10. VINCRISTINE [Suspect]
     Active Substance: VINCRISTINE
     Route: 065
  11. VINCRISTINE [Suspect]
     Active Substance: VINCRISTINE
     Indication: NODAL MARGINAL ZONE B-CELL LYMPHOMA
     Route: 065
  12. RITUXIMAB [Suspect]
     Active Substance: RITUXIMAB
     Route: 042
  13. ENDOXAN 1000 MG, POUDRE POUR SOLUTION INJECTABLE [Suspect]
     Active Substance: CYCLOPHOSPHAMIDE
     Indication: NODAL MARGINAL ZONE B-CELL LYMPHOMA
     Route: 065
  14. DOXORUBICIN [Suspect]
     Active Substance: DOXORUBICIN
     Indication: NODAL MARGINAL ZONE B-CELL LYMPHOMA
     Route: 065
  15. DOXORUBICIN [Suspect]
     Active Substance: DOXORUBICIN
     Route: 065
  16. PREDNISONE. [Suspect]
     Active Substance: PREDNISONE
     Route: 065
  17. BENDAMUSTINE [Concomitant]
     Active Substance: BENDAMUSTINE
     Route: 065

REACTIONS (1)
  - Lymphocytosis [Recovered/Resolved]
